FAERS Safety Report 7001052-5 (Version None)
Quarter: 2010Q3

REPORT INFORMATION
  Report Type: 
  Country: None (occurrence: None)
  Receive Date: 20100920
  Receipt Date: 20100615
  Transmission Date: 20110219
  Serious: No
  Sender: FDA-Public Use
  Company Number: US-ASTRAZENECA-2010SE28749

PATIENT
  Age: 51 Year
  Sex: Female

DRUGS (6)
  1. SEROQUEL [Suspect]
     Route: 048
     Dates: start: 20020101
  2. ATIVAN [Concomitant]
     Dates: start: 20020907
  3. LIPITOR [Concomitant]
     Dates: start: 20021012
  4. ZYPREXA [Concomitant]
     Dates: start: 20020101
  5. TOPROL-XL [Concomitant]
     Dates: start: 20060101
  6. ZOCOR [Concomitant]
     Dates: start: 20060101

REACTIONS (2)
  - THYROID CYST [None]
  - TYPE 2 DIABETES MELLITUS [None]
